FAERS Safety Report 15806603 (Version 1)
Quarter: 2019Q1

REPORT INFORMATION
  Report Type: Spontaneous
  Country: US (occurrence: US)
  Receive Date: 20190110
  Receipt Date: 20190110
  Transmission Date: 20190417
  Serious: No
  Sender: FDA-Public Use
  Company Number: US-009507513-1901USA000665

PATIENT
  Age: 29 Year
  Sex: Female
  Weight: 55.33 kg

DRUGS (1)
  1. NEXPLANON [Suspect]
     Active Substance: ETONOGESTREL
     Indication: CONTRACEPTION
     Dosage: 1 DOSAGE FORM, LEFT
     Route: 059
     Dates: start: 20180615

REACTIONS (4)
  - Device breakage [Not Recovered/Not Resolved]
  - Device kink [Not Recovered/Not Resolved]
  - Product quality issue [Unknown]
  - Implant site pain [Unknown]

NARRATIVE: CASE EVENT DATE: 201812
